FAERS Safety Report 7146696-5 (Version None)
Quarter: 2010Q4

REPORT INFORMATION
  Report Type: 
  Country: None (occurrence: None)
  Receive Date: 20101208
  Receipt Date: 20101126
  Transmission Date: 20110411
  Serious: Yes (Hospitalization)
  Sender: FDA-Public Use
  Company Number: JP-PFIZER INC-2010158711

PATIENT
  Age: 76 Year
  Sex: Female
  Weight: 55.2 kg

DRUGS (10)
  1. AZULFIDINE [Suspect]
     Indication: RHEUMATOID ARTHRITIS
     Dosage: 500 MG, 2X/DAY
     Route: 048
     Dates: start: 20090203, end: 20090927
  2. RIMATIL [Suspect]
     Indication: RHEUMATOID ARTHRITIS
     Dosage: 100 MG, 2X/DAY
     Route: 048
     Dates: start: 20090928, end: 20100706
  3. PREDONINE [Concomitant]
     Dosage: 5 MG, 1X/DAY
     Route: 048
     Dates: start: 20090821
  4. MUCOSTA [Concomitant]
     Indication: PROPHYLAXIS
     Dosage: 100 MG, 3X/DAY
     Route: 048
     Dates: start: 20090821, end: 20100713
  5. YOKUININTO [Concomitant]
     Dosage: 2.5 G, 3X/DAY
     Route: 048
     Dates: start: 20090306
  6. BOUIOUGITOU [Concomitant]
     Dosage: 2.5 G, 3X/DAY
     Route: 048
     Dates: start: 20090203, end: 20090306
  7. NORVASC [Concomitant]
     Dosage: 5 MG, 1X/DAY
     Route: 048
  8. GLYCYRON [Concomitant]
     Dosage: 2 TAB, 3X/DAY
  9. LIPITOR [Concomitant]
     Dosage: 10 MG, 1X/DAY
     Route: 048
  10. VOLTAREN [Concomitant]
     Dosage: 1 DF, 1X/DAY

REACTIONS (2)
  - GLOMERULONEPHRITIS MEMBRANOUS [None]
  - MESANGIOPROLIFERATIVE GLOMERULONEPHRITIS [None]
